FAERS Safety Report 20038709 (Version 5)
Quarter: 2021Q4

REPORT INFORMATION
  Report Type: Spontaneous
  Country: DE (occurrence: DE)
  Receive Date: 20211105
  Receipt Date: 20211209
  Transmission Date: 20220303
  Serious: Yes (Other)
  Sender: FDA-Public Use
  Company Number: DE-002147023-NVSC2021DE251333

PATIENT
  Sex: Male

DRUGS (2)
  1. VOLTAREN [Suspect]
     Active Substance: DICLOFENAC SODIUM
     Indication: Back pain
     Dosage: 2 DF (2 DOSAGE FORM)
     Route: 065
     Dates: start: 20211025, end: 20211026
  2. VOLTAREN [Suspect]
     Active Substance: DICLOFENAC SODIUM
     Dosage: 2 DF (2 DOSAGE FORM)
     Route: 065
     Dates: start: 20211027, end: 20211028

REACTIONS (3)
  - Haematochezia [Unknown]
  - Fear [Unknown]
  - Haemoptysis [Unknown]

NARRATIVE: CASE EVENT DATE: 20211028
